FAERS Safety Report 10887710 (Version 1)
Quarter: 2015Q1

REPORT INFORMATION
  Report Type: Spontaneous
  Country: US (occurrence: US)
  Receive Date: 20150304
  Receipt Date: 20150304
  Transmission Date: 20150721
  Serious: No
  Sender: FDA-Public Use
  Company Number: US-AMGEN-USASP2014039701

PATIENT
  Age: 56 Year
  Sex: Female

DRUGS (8)
  1. BIOTIN [Concomitant]
     Active Substance: BIOTIN
     Dosage: UNK
  2. XANAX [Concomitant]
     Active Substance: ALPRAZOLAM
     Dosage: UNK
  3. ENBREL [Suspect]
     Active Substance: ETANERCEPT
     Indication: ANKYLOSING SPONDYLITIS
     Dosage: 50 MG, QWK
     Route: 058
     Dates: start: 201311, end: 20140514
  4. VITAMIN D                          /00107901/ [Concomitant]
     Active Substance: ERGOCALCIFEROL
     Dosage: UNK
  5. CRESTOR [Concomitant]
     Active Substance: ROSUVASTATIN CALCIUM
     Dosage: UNK
  6. MENTAX [Concomitant]
     Active Substance: BUTENAFINE HYDROCHLORIDE
     Dosage: UNK
  7. MELATONIN [Concomitant]
     Active Substance: MELATONIN
     Dosage: UNK
  8. SYNTHROID [Concomitant]
     Active Substance: LEVOTHYROXINE SODIUM
     Dosage: UNK

REACTIONS (1)
  - Drug ineffective [Unknown]

NARRATIVE: CASE EVENT DATE: 201402
